FAERS Safety Report 8960803 (Version 1)
Quarter: 2012Q4

REPORT INFORMATION
  Report Type: Spontaneous
  Country: US (occurrence: None)
  Receive Date: 20121211
  Receipt Date: 20121211
  Transmission Date: 20130627
  Serious: Yes (Hospitalization)
  Sender: FDA-Public Use
  Company Number: None

PATIENT
  Age: 30 Year
  Sex: Male
  Weight: 108.6 kg

DRUGS (1)
  1. BUSPIRONE [Suspect]
     Indication: DEPRESSION
     Route: 048
     Dates: start: 20121103, end: 20121201

REACTIONS (5)
  - Rash [None]
  - Urticaria [None]
  - Pruritus [None]
  - Eye swelling [None]
  - Oedema peripheral [None]
